FAERS Safety Report 7692728-5 (Version None)
Quarter: 2011Q3

REPORT INFORMATION
  Report Type: 
  Country: None (occurrence: None)
  Receive Date: 20110819
  Receipt Date: 20110816
  Transmission Date: 20111222
  Serious: No
  Sender: FDA-Public Use
  Company Number: US-PFIZER INC-2011189422

PATIENT
  Sex: Female

DRUGS (3)
  1. NEURONTIN [Suspect]
     Indication: PAIN
     Dosage: 300MG DAILY
  2. NEURONTIN [Suspect]
     Dosage: 300 MG, 2X/DAY
  3. NEURONTIN [Suspect]
     Dosage: 300 MG, 3X/DAY

REACTIONS (2)
  - DRUG INEFFECTIVE [None]
  - INSOMNIA [None]
